FAERS Safety Report 4590866-7 (Version None)
Quarter: 2005Q1

REPORT INFORMATION
  Report Type: 
  Country: None (occurrence: None)
  Receive Date: 20050225
  Receipt Date: 20040310
  Transmission Date: 20050727
  Serious: No
  Sender: FDA-Public Use
  Company Number: US-GLAXOSMITHKLINE-A0502168A

PATIENT

DRUGS (1)
  1. ZIAGEN [Suspect]

REACTIONS (1)
  - CSF TEST ABNORMAL [None]
